FAERS Safety Report 4290521-7 (Version None)
Quarter: 2004Q1

REPORT INFORMATION
  Report Type: 
  Country: None (occurrence: None)
  Receive Date: 20040126
  Receipt Date: 20030930
  Transmission Date: 20041129
  Serious: No
  Sender: FDA-Public Use
  Company Number: USA030948014

PATIENT
  Age: 77 Year
  Sex: Female

DRUGS (2)
  1. FORTEO [Suspect]
     Indication: OSTEOPOROSIS
     Dosage: 20 UG/DAY
     Dates: start: 20030918
  2. EVISTA [Suspect]

REACTIONS (5)
  - DIARRHOEA [None]
  - ERYTHEMA [None]
  - FEELING COLD [None]
  - MIGRAINE [None]
  - PRURITUS [None]
